FAERS Safety Report 18438121 (Version 5)
Quarter: 2021Q4

REPORT INFORMATION
  Report Type: Spontaneous
  Country: None (occurrence: US)
  Receive Date: 20201029
  Receipt Date: 20211125
  Transmission Date: 20220304
  Serious: No
  Sender: FDA-Public Use
  Company Number: US-AKCEA THERAPEUTICS-2020IS001464

PATIENT
  Age: 71 Year
  Sex: Male

DRUGS (2)
  1. TEGSEDI [Suspect]
     Active Substance: INOTERSEN SODIUM
     Indication: Hereditary neuropathic amyloidosis
     Route: 058
     Dates: start: 20190625
  2. DEVICE [Suspect]
     Active Substance: DEVICE

REACTIONS (18)
  - Blood creatinine increased [Unknown]
  - Glomerular filtration rate decreased [Unknown]
  - Urine protein/creatinine ratio increased [Unknown]
  - Platelet count decreased [Unknown]
  - Urinary occult blood positive [Unknown]
  - Protein urine present [Unknown]
  - Nitrite urine present [Unknown]
  - Urine leukocyte esterase positive [Unknown]
  - White blood cells urine positive [Unknown]
  - Red blood cells urine positive [Unknown]
  - Bacterial test positive [Unknown]
  - Urinary sediment present [Unknown]
  - Urinary casts [Unknown]
  - Urine abnormality [Unknown]
  - Pyuria [Unknown]
  - Urine analysis abnormal [Unknown]
  - Urine uric acid abnormal [Unknown]
  - Crystal urine present [Unknown]
